FAERS Safety Report 4358779-3 (Version None)
Quarter: 2004Q2

REPORT INFORMATION
  Report Type: 
  Country: None (occurrence: None)
  Receive Date: 20040517
  Receipt Date: 20040505
  Transmission Date: 20050107
  Serious: Yes (Death, Hospitalization)
  Sender: FDA-Public Use
  Company Number: BE-BRISTOL-MYERS SQUIBB COMPANY-12581732

PATIENT
  Age: 92 Year
  Sex: Female
  Weight: 63 kg

DRUGS (8)
  1. MAXIPIME [Suspect]
     Indication: LUNG DISORDER
     Route: 042
     Dates: end: 20040202
  2. ENOXAPARIN SODIUM [Concomitant]
     Dosage: ONCE DAILY
     Route: 058
  3. PERFUSALGAN [Concomitant]
     Route: 042
  4. LOGASTRIC [Concomitant]
     Route: 048
  5. ISOTEN [Concomitant]
     Route: 048
  6. BIFITERAL [Concomitant]
     Route: 048
  7. KAYEXALATE [Concomitant]
  8. VANCOMYCIN [Concomitant]
     Route: 042

REACTIONS (2)
  - ENCEPHALOPATHY [None]
  - SEPSIS [None]
